FAERS Safety Report 4914141-3 (Version None)
Quarter: 2006Q1

REPORT INFORMATION
  Report Type: 
  Country: None (occurrence: None)
  Receive Date: 20060213
  Receipt Date: 20060131
  Transmission Date: 20060701
  Serious: No
  Sender: FDA-Public Use
  Company Number: 2006-137865-NL

PATIENT
  Age: 35 Year
  Sex: Female

DRUGS (4)
  1. MARVELON [Suspect]
     Dosage: DF
  2. SIBUTRAMINE HYDROCHLORIDE [Suspect]
     Indication: OBESITY
     Dosage: DF/15 MG  ORAL
     Route: 048
     Dates: end: 20040101
  3. SIBUTRAMINE HYDROCHLORIDE [Suspect]
     Indication: OBESITY
     Dosage: DF/15 MG  ORAL
     Route: 048
     Dates: start: 20050520
  4. PANTOPRAZOLE SODIUM [Concomitant]

REACTIONS (6)
  - COLD SWEAT [None]
  - LACUNAR INFARCTION [None]
  - NAUSEA [None]
  - PANIC REACTION [None]
  - STRESS [None]
  - VOMITING [None]
